FAERS Safety Report 8031698-7 (Version None)
Quarter: 2012Q1

REPORT INFORMATION
  Report Type: 
  Country: None (occurrence: None)
  Receive Date: 20120109
  Receipt Date: 20120103
  Transmission Date: 20120608
  Serious: Yes (Hospitalization)
  Sender: FDA-Public Use
  Company Number: 2012SP000012

PATIENT
  Age: 76 Year
  Sex: Female

DRUGS (5)
  1. SPIRONOLACTONE [Concomitant]
     Indication: SWELLING
  2. METOPROLOL SUCCINATE [Concomitant]
     Indication: PRODUCT USED FOR UNKNOWN INDICATION
  3. BROVANA [Suspect]
     Indication: CHRONIC OBSTRUCTIVE PULMONARY DISEASE
     Route: 055
     Dates: start: 20100101
  4. TRACLEER [Concomitant]
     Indication: DYSPNOEA
  5. FUROSEMIDE [Concomitant]
     Indication: SWELLING

REACTIONS (9)
  - RECTAL HAEMORRHAGE [None]
  - HYPERSENSITIVITY [None]
  - ASTHENIA [None]
  - OEDEMA PERIPHERAL [None]
  - MALAISE [None]
  - DYSPNOEA [None]
  - ANAEMIA [None]
  - POLYP [None]
  - JOINT SWELLING [None]
